FAERS Safety Report 5918192-1 (Version None)
Quarter: 2008Q3

REPORT INFORMATION
  Report Type: 
  Country: None (occurrence: None)
  Receive Date: 20080909
  Receipt Date: 20071023
  Transmission Date: 20090109
  Serious: Yes (Hospitalization)
  Sender: FDA-Public Use
  Company Number: 163-20785-07080989

PATIENT
  Age: 67 Year
  Sex: Male

DRUGS (2)
  1. THALOMID [Suspect]
     Indication: MYELOFIBROSIS
     Dosage: 50 MG, QD, ORAL : 200 MG, QD, ORAL
     Route: 048
     Dates: start: 20040714, end: 20051103
  2. THALOMID [Suspect]
     Indication: MYELOFIBROSIS
     Dosage: 50 MG, QD, ORAL : 200 MG, QD, ORAL
     Route: 048
     Dates: start: 20070618

REACTIONS (1)
  - SEPSIS [None]
